FAERS Safety Report 8734470 (Version 2)
Quarter: 2013Q1

REPORT INFORMATION
  Report Type: Report from Study
  Country: JP (occurrence: JP)
  Receive Date: 20120821
  Receipt Date: 20130114
  Transmission Date: 20140127
  Serious: Yes (Other)
  Sender: FDA-Public Use
  Company Number: JP-VIIV HEALTHCARE LIMITED-B0493139A

PATIENT
  Age: 7 Decade
  Sex: Male
  Weight: 65 kg

DRUGS (14)
  1. EPIVIR [Suspect]
     Indication: HIV INFECTION
     Dosage: 150MG TWICE PER DAY
     Route: 048
     Dates: start: 20060607, end: 20060620
  2. EPIVIR [Suspect]
     Indication: HIV INFECTION
     Route: 048
     Dates: start: 20060905
  3. ZIAGEN [Suspect]
     Indication: HIV INFECTION
     Dosage: 300MG TWICE PER DAY
     Route: 048
     Dates: start: 20110419
  4. ISENTRESS [Suspect]
     Indication: HIV INFECTION
     Route: 048
     Dates: start: 20110419
  5. LEXIVA [Concomitant]
     Indication: HIV INFECTION
     Dosage: 1400MG TWICE PER DAY
     Route: 048
     Dates: start: 20060905, end: 20110418
  6. ZERIT [Concomitant]
     Indication: HIV INFECTION
     Route: 048
     Dates: start: 20060607, end: 20060620
  7. ZERIT [Concomitant]
     Indication: HIV INFECTION
     Route: 048
     Dates: start: 20060905, end: 20110418
  8. NORVIR SOFT [Concomitant]
     Indication: HIV INFECTION
     Route: 048
     Dates: start: 20060607, end: 20060620
  9. REYATAZ [Concomitant]
     Indication: HIV INFECTION
     Route: 048
     Dates: start: 20060607, end: 20060620
  10. ZITHROMAC [Concomitant]
     Indication: OPPORTUNISTIC INFECTION PROPHYLAXIS
     Route: 048
     Dates: start: 20060620, end: 20070201
  11. ADALAT [Concomitant]
     Indication: CEREBRAL INFARCTION
     Dosage: 20MG PER DAY
     Route: 048
     Dates: start: 20110401
  12. PERSANTIN [Concomitant]
     Indication: CEREBRAL INFARCTION
     Dosage: 150MG TWICE PER DAY
     Route: 048
     Dates: start: 20110401
  13. PRAVASTATIN [Concomitant]
     Indication: HYPERLIPIDAEMIA
     Dosage: 5MG PER DAY
     Route: 048
     Dates: start: 20120215
  14. EPADEL [Concomitant]
     Indication: HYPERLIPIDAEMIA
     Dosage: 600MG THREE TIMES PER DAY
     Route: 048
     Dates: start: 20120215

REACTIONS (2)
  - Renal impairment [Not Recovered/Not Resolved]
  - Cerebral haemorrhage [Recovering/Resolving]
